FAERS Safety Report 4398817-5 (Version None)
Quarter: 2004Q3

REPORT INFORMATION
  Report Type: 
  Country: None (occurrence: None)
  Receive Date: 20040712
  Receipt Date: 20040621
  Transmission Date: 20050211
  Serious: Yes (Hospitalization, Other)
  Sender: FDA-Public Use
  Company Number: USA040670683

PATIENT
  Age: 84 Year
  Sex: Female
  Weight: 50 kg

DRUGS (3)
  1. FORTEO [Suspect]
     Indication: OSTEOPOROSIS
     Dates: start: 20040301
  2. SYNTHROID (KLEVOTHYROXINE SODIUM) [Concomitant]
  3. TOPROL-XL [Concomitant]

REACTIONS (5)
  - GRIP STRENGTH DECREASED [None]
  - INCISION SITE COMPLICATION [None]
  - MEDICAL DEVICE PAIN [None]
  - PAIN [None]
  - PHARMACEUTICAL PRODUCT COMPLAINT [None]
